FAERS Safety Report 7592934-4 (Version None)
Quarter: 2011Q3

REPORT INFORMATION
  Report Type: 
  Country: None (occurrence: None)
  Receive Date: 20110706
  Receipt Date: 20110623
  Transmission Date: 20111222
  Serious: Yes (Hospitalization)
  Sender: FDA-Public Use
  Company Number: JP-ROCHE-773837

PATIENT
  Sex: Female
  Weight: 47 kg

DRUGS (23)
  1. ACTEMRA [Suspect]
     Dosage: DOSAGE WAS UNCERTAIN
     Route: 042
     Dates: start: 20100121
  2. CELECOXIB [Concomitant]
     Route: 048
     Dates: start: 20080124
  3. OMEPRAZOLE [Concomitant]
     Route: 048
     Dates: start: 20081016
  4. ACTEMRA [Suspect]
     Dosage: ROUTE::INTRAVENOUS DRIP DOSAGE IS UNCERTAIN.
     Route: 042
     Dates: start: 20091217, end: 20091217
  5. PREDNISOLONE [Concomitant]
     Route: 048
     Dates: start: 20090724, end: 20091029
  6. ISONIAZID [Concomitant]
     Route: 048
     Dates: start: 20070112
  7. ESPO [Concomitant]
     Dosage: DOSE FORM: INFUSION
     Route: 058
  8. ACTEMRA [Suspect]
     Dosage: ROUTE::INTRAVENOUS DRIP DOSAGE IS UNCERTAIN.
     Route: 042
     Dates: start: 20091001, end: 20091001
  9. ACTEMRA [Suspect]
     Dosage: ROUTE::INTRAVENOUS DRIP DOSAGE IS UNCERTAIN.
     Route: 042
     Dates: start: 20091029, end: 20091029
  10. METHYCOBAL [Concomitant]
     Route: 048
  11. ACTEMRA [Suspect]
     Indication: RHEUMATOID ARTHRITIS
     Dosage: ROUTE::INTRAVENOUS DRIP DOSAGE IS UNCERTAIN.
     Route: 042
     Dates: start: 20090709, end: 20090709
  12. ACTEMRA [Suspect]
     Dosage: ROUTE::INTRAVENOUS DRIP DOSAGE IS UNCERTAIN.
     Route: 042
     Dates: start: 20091126, end: 20091126
  13. VFEND [Concomitant]
     Route: 048
     Dates: start: 20110302
  14. PREDNISOLONE [Concomitant]
     Route: 048
     Dates: start: 20091030
  15. NORVASC [Concomitant]
     Route: 048
  16. PYDOXAL [Concomitant]
     Route: 048
     Dates: start: 20070112
  17. ACTEMRA [Suspect]
     Dosage: ROUTE::INTRAVENOUS DRIP DOSAGE IS UNCERTAIN.
     Route: 042
     Dates: start: 20090903, end: 20090903
  18. PREDNISOLONE [Concomitant]
     Indication: RHEUMATOID ARTHRITIS
     Route: 048
     Dates: end: 20090723
  19. DIOVAN [Concomitant]
     Route: 048
  20. WARFARIN SODIUM [Concomitant]
     Dosage: DOSE FORM: PERORAL AGENT
     Route: 048
  21. ACTEMRA [Suspect]
     Route: 042
     Dates: start: 20090806, end: 20090806
  22. SULFAMETHOXAZOLE [Concomitant]
     Route: 048
     Dates: start: 20050823
  23. CLARITHROMYCIN [Concomitant]
     Route: 048

REACTIONS (1)
  - EMBOLIC CEREBRAL INFARCTION [None]
